FAERS Safety Report 22383191 (Version 2)
Quarter: 2025Q2

REPORT INFORMATION
  Report Type: Spontaneous
  Country: KR (occurrence: KR)
  Receive Date: 20230530
  Receipt Date: 20250424
  Transmission Date: 20250717
  Serious: Yes (Other)
  Sender: MYLAN
  Company Number: KR-MYLANLABS-2023M1054380

PATIENT
  Age: 56 Year
  Sex: Female

DRUGS (4)
  1. ZELDOX [Suspect]
     Active Substance: ZIPRASIDONE
     Indication: Psychotic disorder
  2. ZELDOX [Suspect]
     Active Substance: ZIPRASIDONE
     Route: 065
  3. ZELDOX [Suspect]
     Active Substance: ZIPRASIDONE
     Route: 065
  4. ZELDOX [Suspect]
     Active Substance: ZIPRASIDONE

REACTIONS (3)
  - Psychotic symptom [Unknown]
  - Rabbit syndrome [Unknown]
  - Dyskinesia [Unknown]
